FAERS Safety Report 18915590 (Version 1)
Quarter: 2021Q1

REPORT INFORMATION
  Report Type: Spontaneous
  Country: JP (occurrence: JP)
  Receive Date: 20210219
  Receipt Date: 20210219
  Transmission Date: 20210420
  Serious: Yes (Other)
  Sender: FDA-Public Use
  Company Number: JP-MYLANLABS-2021M1009576

PATIENT
  Age: 57 Year
  Sex: Female

DRUGS (15)
  1. EPIRUBICIN [Suspect]
     Active Substance: EPIRUBICIN
     Indication: HER2 NEGATIVE BREAST CANCER
  2. ANASTROZOLE. [Suspect]
     Active Substance: ANASTROZOLE
     Indication: BREAST CANCER STAGE III
     Dosage: 1 MILLIGRAM, QD
     Route: 048
  3. FLUOROURACIL. [Suspect]
     Active Substance: FLUOROURACIL
     Indication: HER2 NEGATIVE BREAST CANCER
  4. CYCLOPHOSPHAMIDE. [Suspect]
     Active Substance: CYCLOPHOSPHAMIDE
     Indication: HORMONE RECEPTOR POSITIVE BREAST CANCER
  5. EPIRUBICIN [Suspect]
     Active Substance: EPIRUBICIN
     Indication: BREAST CANCER STAGE III
     Dosage: 100 MILLIGRAM/SQ. METER
     Route: 065
  6. EPIRUBICIN [Suspect]
     Active Substance: EPIRUBICIN
     Indication: HORMONE RECEPTOR POSITIVE BREAST CANCER
  7. FLUOROURACIL. [Suspect]
     Active Substance: FLUOROURACIL
     Indication: BREAST CANCER STAGE III
     Dosage: 500 MILLIGRAM/SQ. METER
     Route: 065
  8. FLUOROURACIL. [Suspect]
     Active Substance: FLUOROURACIL
     Indication: HORMONE RECEPTOR POSITIVE BREAST CANCER
  9. DOCETAXEL. [Suspect]
     Active Substance: DOCETAXEL
     Indication: HER2 NEGATIVE BREAST CANCER
  10. CYCLOPHOSPHAMIDE. [Suspect]
     Active Substance: CYCLOPHOSPHAMIDE
     Indication: BREAST CANCER STAGE III
     Dosage: 500 MILLIGRAM/SQ. METER, CYCLE, ON DAY 1 IV INFUSION FOR 4 WEEKS FOR 3 COURSES
     Route: 042
  11. CYCLOPHOSPHAMIDE. [Suspect]
     Active Substance: CYCLOPHOSPHAMIDE
     Indication: HER2 NEGATIVE BREAST CANCER
  12. ANASTROZOLE. [Suspect]
     Active Substance: ANASTROZOLE
     Indication: HORMONE RECEPTOR POSITIVE BREAST CANCER
  13. ANASTROZOLE. [Suspect]
     Active Substance: ANASTROZOLE
     Indication: HER2 NEGATIVE BREAST CANCER
  14. DOCETAXEL. [Suspect]
     Active Substance: DOCETAXEL
     Indication: BREAST CANCER STAGE III
     Dosage: ON DAY 1 FOR 4 WEEKS
     Route: 042
  15. DOCETAXEL. [Suspect]
     Active Substance: DOCETAXEL
     Indication: HORMONE RECEPTOR POSITIVE BREAST CANCER

REACTIONS (1)
  - Chronic myeloid leukaemia [Recovered/Resolved]

NARRATIVE: CASE EVENT DATE: 201106
